FAERS Safety Report 19324826 (Version 1)
Quarter: 2021Q2

REPORT INFORMATION
  Report Type: Report from Study
  Country: CN (occurrence: CN)
  Receive Date: 20210528
  Receipt Date: 20210528
  Transmission Date: 20210717
  Serious: Yes (Other)
  Sender: FDA-Public Use
  Company Number: CN-SNT-000060

PATIENT
  Age: 12 Year
  Sex: Female

DRUGS (8)
  1. DAUNORUBICIN [Suspect]
     Active Substance: DAUNORUBICIN
     Indication: CHEMOTHERAPY
     Dosage: 25 MG/M2 (DAY 1)
     Route: 065
  2. METHOTREXATE. [Suspect]
     Active Substance: METHOTREXATE
     Indication: CHEMOTHERAPY
     Dosage: 12.5 MG
     Route: 037
  3. DEXAMETHASONE. [Suspect]
     Active Substance: DEXAMETHASONE
     Indication: CHEMOTHERAPY
     Dosage: 5.0 MG; DAY 1
     Route: 037
  4. POSACONAZOLE [Suspect]
     Active Substance: POSACONAZOLE
     Indication: PNEUMONIA FUNGAL
     Dosage: FOR 4 MONTHS
     Route: 048
  5. PEGASPARGASE [Suspect]
     Active Substance: PEGASPARGASE
     Indication: CHEMOTHERAPY
     Dosage: 2000 U/M2 (DAY 3)
     Route: 065
  6. CYTARABINE. [Suspect]
     Active Substance: CYTARABINE
     Indication: CHEMOTHERAPY
     Dosage: 35 MG
     Route: 037
  7. DEXAMETHASONE. [Suspect]
     Active Substance: DEXAMETHASONE
     Indication: CHEMOTHERAPY
     Dosage: 8 MG/M2 /DAY(DAYS 1 TO 7 AND 15 TO 21)
  8. VINCRISTINE [Interacting]
     Active Substance: VINCRISTINE
     Indication: CHEMOTHERAPY
     Dosage: 1.5 MG/M2 (DAYS 1, 8, AND 15)
     Route: 065

REACTIONS (13)
  - Ileus paralytic [Unknown]
  - Dysuria [Unknown]
  - Hypoaesthesia [Recovered/Resolved]
  - Drug interaction [Recovered/Resolved]
  - Inappropriate antidiuretic hormone secretion [Unknown]
  - Dyschezia [Unknown]
  - Secondary hypertension [Recovered/Resolved]
  - Neuropathy peripheral [Unknown]
  - Abdominal distension [Unknown]
  - Abdominal pain [Unknown]
  - Generalised tonic-clonic seizure [Unknown]
  - Somnolence [Unknown]
  - Muscular weakness [Recovered/Resolved]
